FAERS Safety Report 8688278 (Version 2)
Quarter: 2012Q4

REPORT INFORMATION
  Report Type: 
  Country: AU (occurrence: AU)
  Receive Date: 20120727
  Receipt Date: 20121010
  Transmission Date: 20130627
  Serious: Yes (Life-Threatening, Hospitalization, Other)
  Sender: FDA-Public Use
  Company Number: AU-B.I. PHARMACEUTICALS,INC./RIDGEFIELD-2012-AU-01252AU

PATIENT
  Age: 65 Year
  Sex: Male

DRUGS (3)
  1. MICARDIS PLUS [Suspect]
     Indication: HYPERTENSION
     Dosage: 80/12.5 mg Mane
     Dates: start: 2011, end: 20120523
  2. COVERSYL [Suspect]
     Dosage: 5 mg
     Dates: start: 2010, end: 20120523
  3. ATENOLOL [Concomitant]

REACTIONS (4)
  - Anaphylactic reaction [Recovered/Resolved]
  - Hypovolaemic shock [Recovered/Resolved]
  - Angioedema [Recovered/Resolved]
  - Dyspnoea [Recovered/Resolved]
